FAERS Safety Report 24175485 (Version 1)
Quarter: 2024Q3

REPORT INFORMATION
  Report Type: Spontaneous
  Country: US (occurrence: US)
  Receive Date: 20240805
  Receipt Date: 20240805
  Transmission Date: 20241017
  Serious: No
  Sender: EVOKE PHARMA
  Company Number: US-EVOKE PHARMA, INC.-2023EVO000116

PATIENT

DRUGS (2)
  1. GIMOTI [Suspect]
     Active Substance: METOCLOPRAMIDE HYDROCHLORIDE
     Indication: Product used for unknown indication
     Dosage: 15 MILLIGRAM, 1 SPRAY IN ONE NOSTRIL FOUR TIMES DAILY AS DIRECTED.
     Route: 045
     Dates: start: 202303, end: 2023
  2. GIMOTI [Suspect]
     Active Substance: METOCLOPRAMIDE HYDROCHLORIDE
     Dosage: 15 MILLIGRAM, 1 SPRAY IN ONE NOSTRIL FOUR TIMES DAILY AS DIRECTED.
     Route: 045
     Dates: start: 2023, end: 2023

REACTIONS (2)
  - Nasal crusting [Unknown]
  - Nasal discomfort [Unknown]

NARRATIVE: CASE EVENT DATE: 20230101
